FAERS Safety Report 4595596-3 (Version None)
Quarter: 2005Q1

REPORT INFORMATION
  Report Type: 
  Country: None (occurrence: None)
  Receive Date: 20050224
  Receipt Date: 20050208
  Transmission Date: 20050727
  Serious: Yes (Other)
  Sender: FDA-Public Use
  Company Number: 200501050

PATIENT
  Age: 59 Year
  Sex: Female

DRUGS (4)
  1. ORAL EPINASTINE [Suspect]
  2. ACETYLSALICYLIC ACID [Concomitant]
  3. ASCORBIC ACID [Concomitant]
  4. TOCOPHERYL NICOTINATE [Concomitant]

REACTIONS (1)
  - NEPHRITIS HAEMORRHAGIC [None]
